FAERS Safety Report 10204642 (Version 1)
Quarter: 2014Q2

REPORT INFORMATION
  Report Type: Spontaneous
  Country: US (occurrence: US)
  Receive Date: 20140529
  Receipt Date: 20140529
  Transmission Date: 20141212
  Serious: No
  Sender: FDA-Public Use
  Company Number: US-GILEAD-2014-0103519

PATIENT
  Sex: Male

DRUGS (2)
  1. RANEXA [Suspect]
     Indication: PRODUCT USED FOR UNKNOWN INDICATION
     Dosage: 500 MG, UNK
     Route: 065
  2. RANEXA [Suspect]
     Dosage: 1000 MG, UNK
     Route: 065

REACTIONS (4)
  - Memory impairment [Unknown]
  - Vertigo [Unknown]
  - Dizziness [Unknown]
  - Headache [Unknown]
